FAERS Safety Report 13184251 (Version 2)
Quarter: 2017Q1

REPORT INFORMATION
  Report Type: Spontaneous
  Country: NO (occurrence: NO)
  Receive Date: 20170203
  Receipt Date: 20170207
  Transmission Date: 20170428
  Serious: Yes (Death, Hospitalization)
  Sender: FDA-Public Use
  Company Number: NO-PFIZER INC-2017047783

PATIENT
  Age: 70 Year
  Sex: Male

DRUGS (6)
  1. CYKLOKAPRON [Suspect]
     Active Substance: TRANEXAMIC ACID
     Indication: HAEMORRHAGE PROPHYLAXIS
     Dosage: 1 G, 4X/DAY
     Dates: start: 20161226
  2. PREDNISOLONE. [Suspect]
     Active Substance: PREDNISOLONE
     Indication: IMMUNE THROMBOCYTOPENIC PURPURA
     Dosage: 100 MG, 1X/DAY
     Dates: start: 20161224, end: 20161229
  3. NPLATE [Suspect]
     Active Substance: ROMIPLOSTIM
     Indication: IMMUNE THROMBOCYTOPENIC PURPURA
     Dosage: 250 UG, WEEKLY (250 MCG, QWK)
     Route: 058
     Dates: start: 20161228, end: 20161228
  4. NPLATE [Suspect]
     Active Substance: ROMIPLOSTIM
     Dosage: UNK
     Dates: start: 20161226
  5. DEXAMETHASONE. [Suspect]
     Active Substance: DEXAMETHASONE
     Indication: IMMUNE THROMBOCYTOPENIC PURPURA
     Dosage: 40 MG, 1X/DAY
     Dates: start: 20161230
  6. CYKLOKAPRON [Suspect]
     Active Substance: TRANEXAMIC ACID
     Indication: IMMUNE THROMBOCYTOPENIC PURPURA

REACTIONS (2)
  - Mesenteric vascular insufficiency [Fatal]
  - Abdominal pain upper [Unknown]

NARRATIVE: CASE EVENT DATE: 20161230
